FAERS Safety Report 25837377 (Version 1)
Quarter: 2025Q3

REPORT INFORMATION
  Report Type: Spontaneous
  Country: US (occurrence: US)
  Receive Date: 20250923
  Receipt Date: 20250923
  Transmission Date: 20251021
  Serious: No
  Sender: VERTEX
  Company Number: US-VERTEX PHARMACEUTICALS-2025-015390

PATIENT
  Age: 66 Year

DRUGS (6)
  1. JOURNAVX [Suspect]
     Active Substance: SUZETRIGINE
     Indication: Pain
     Dosage: 100 MG (TWO 50 MG TABLETS), SINGLE
     Route: 048
     Dates: start: 20250912, end: 202509
  2. JOURNAVX [Suspect]
     Active Substance: SUZETRIGINE
     Route: 048
     Dates: start: 202509
  3. DILAUDID [Concomitant]
     Active Substance: HYDROMORPHONE HYDROCHLORIDE
     Indication: Pain
     Route: 037
  4. BACLOFEN [Concomitant]
     Active Substance: BACLOFEN
     Indication: Pain
     Route: 037
  5. BUPIVACAINE [Concomitant]
     Active Substance: BUPIVACAINE
     Indication: Pain
     Route: 037
  6. OXYCODONE [Concomitant]
     Active Substance: OXYCODONE

REACTIONS (8)
  - Nausea [Unknown]
  - Vomiting [Unknown]
  - Chills [Unknown]
  - Muscle spasms [Unknown]
  - Erythema [Unknown]
  - Headache [Unknown]
  - Blood pressure increased [Unknown]
  - Off label use [Unknown]

NARRATIVE: CASE EVENT DATE: 20250912
